FAERS Safety Report 8844954 (Version 2)
Quarter: 2012Q4

REPORT INFORMATION
  Report Type: Spontaneous
  Country: US (occurrence: None)
  Receive Date: 20121002
  Receipt Date: 20121002
  Transmission Date: 20130627
  Serious: Yes (Death)
  Sender: FDA-Public Use
  Company Number: RB-36353-2012

PATIENT
  Age: 27 Year
  Sex: Female
  Weight: 45.81 kg

DRUGS (1)
  1. SUBOXONE [Suspect]
     Indication: DRUG DEPENDENCE
     Route: 060
     Dates: start: 20101229, end: 20111209

REACTIONS (1)
  - Overdose [None]
